FAERS Safety Report 8761998 (Version 3)
Quarter: 2012Q4

REPORT INFORMATION
  Report Type: 
  Country: US (occurrence: US)
  Receive Date: 20120830
  Receipt Date: 20121009
  Transmission Date: 20130627
  Serious: Yes (Hospitalization, Other)
  Sender: FDA-Public Use
  Company Number: US-PFIZER INC-2012208698

PATIENT
  Age: 70 Year
  Sex: Female
  Weight: 68.48 kg

DRUGS (11)
  1. REVATIO [Suspect]
     Indication: CHEST PAIN
     Dosage: 20 mg, 2x/week
     Route: 048
  2. SPIRONOLACTONE [Concomitant]
     Indication: DYSPNOEA
     Dosage: 50 mg, 2x/day
  3. ASPIRIN [Concomitant]
     Indication: CEREBROVASCULAR ACCIDENT PROPHYLAXIS
     Dosage: 81 mg, daily
  4. POTASSIUM [Concomitant]
     Indication: BLOOD POTASSIUM DECREASED
     Dosage: 20 mg, 2x/day
  5. FERROUS GLUCONATE [Concomitant]
     Indication: BLOOD IRON DECREASED
     Dosage: 324 mg, 2x/day
  6. TORSEMIDE [Concomitant]
     Indication: BLOOD PRESSURE ABNORMAL
     Dosage: 50 mg, daily
  7. TORSEMIDE [Concomitant]
     Indication: FLUID RETENTION
  8. CARVEDILOL [Concomitant]
     Indication: BLOOD PRESSURE ABNORMAL
     Dosage: 3.125 mg, 2x/day
  9. LEVOTHYROXINE SODIUM [Concomitant]
     Indication: THYROID DISORDER
     Dosage: 0.075 mg, daily
  10. WARFARIN SODIUM [Concomitant]
     Indication: ANTICOAGULANT THERAPY
     Dosage: 2 mg, daily
  11. SIMVASTATIN [Concomitant]
     Indication: BLOOD CHOLESTEROL ABNORMAL
     Dosage: 20 mg, daily

REACTIONS (5)
  - Chest pain [Not Recovered/Not Resolved]
  - Arrhythmia [Unknown]
  - Heart rate increased [Unknown]
  - Blood count abnormal [Unknown]
  - Off label use [Not Recovered/Not Resolved]
